FAERS Safety Report 9071882 (Version 1)
Quarter: 2013Q1

REPORT INFORMATION
  Report Type: Spontaneous
  Country: US (occurrence: US)
  Receive Date: 20130206
  Receipt Date: 20130206
  Transmission Date: 20140127
  Serious: No
  Sender: FDA-Public Use
  Company Number: US-ALLERGAN-1214146US

PATIENT
  Sex: Male

DRUGS (9)
  1. RESTASIS? [Suspect]
     Indication: PRODUCT USED FOR UNKNOWN INDICATION
     Dosage: 2 GTT, BID
     Route: 047
     Dates: start: 201209, end: 201209
  2. ATENOLOL [Concomitant]
     Indication: HYPERTENSION
     Dosage: UNK
     Route: 048
  3. TRAIMTERENE [Concomitant]
     Indication: HYPERTENSION
     Dosage: UNK
     Route: 048
  4. SYNTHROID [Concomitant]
     Indication: HYPOTHYROIDISM
     Dosage: UNK UNK, QD
     Route: 048
     Dates: start: 2011
  5. FLOMAX                             /00889901/ [Concomitant]
     Indication: PRODUCT USED FOR UNKNOWN INDICATION
     Dosage: UNK UNK, QD
     Route: 048
  6. BUSPIRONE [Concomitant]
     Indication: ANXIETY
     Dosage: UNK
     Route: 048
     Dates: start: 2012
  7. ALPRAZOLAM [Concomitant]
     Indication: ANXIETY
     Dosage: UNK UNK, QD
     Route: 048
     Dates: start: 201209
  8. CENTRUM SILVER                     /01292501/ [Concomitant]
     Indication: SUPPLEMENTATION THERAPY
     Dosage: UNK
     Route: 048
  9. CALCIUM [Concomitant]
     Indication: SUPPLEMENTATION THERAPY
     Dosage: UNK
     Route: 048

REACTIONS (3)
  - Vision blurred [Recovered/Resolved]
  - Headache [Recovered/Resolved]
  - Ocular hyperaemia [Recovered/Resolved]
